FAERS Safety Report 14836570 (Version 1)
Quarter: 2018Q2

REPORT INFORMATION
  Report Type: Spontaneous
  Country: US (occurrence: US)
  Receive Date: 20180416
  Receipt Date: 20180416
  Transmission Date: 20180711
  Serious: Yes (Life-Threatening, Hospitalization)
  Sender: FDA-Public Use
  Company Number: None

PATIENT
  Age: 64 Year
  Sex: Female
  Weight: 72 kg

DRUGS (3)
  1. 5-FLUOROURACIL INJECTION (5-FU) [Suspect]
     Active Substance: FLUOROURACIL
  2. AMLODIPINE [Concomitant]
     Active Substance: AMLODIPINE BESYLATE
  3. MOTRIN [Concomitant]
     Active Substance: IBUPROFEN

REACTIONS (8)
  - Cerebrovascular accident [None]
  - Dehydration [None]
  - Muscle spasms [None]
  - Vomiting [None]
  - Asthenia [None]
  - Hypokalaemia [None]
  - Diarrhoea [None]
  - Dyspnoea [None]

NARRATIVE: CASE EVENT DATE: 20180405
